FAERS Safety Report 12969869 (Version 2)
Quarter: 2017Q1

REPORT INFORMATION
  Report Type: Spontaneous
  Country: US (occurrence: US)
  Receive Date: 20161123
  Receipt Date: 20170104
  Transmission Date: 20170428
  Serious: Yes (Other)
  Sender: FDA-Public Use
  Company Number: US-BAYER-2016-224275

PATIENT
  Sex: Female

DRUGS (6)
  1. ETODOLAC. [Concomitant]
     Active Substance: ETODOLAC
  2. IBUPROFEN. [Concomitant]
     Active Substance: IBUPROFEN
  3. ALEVE [Suspect]
     Active Substance: NAPROXEN SODIUM
     Dosage: UNK
  4. CELECOXIB. [Concomitant]
     Active Substance: CELECOXIB
  5. MELOXICAM. [Concomitant]
     Active Substance: MELOXICAM
  6. DIFLUNISAL. [Concomitant]
     Active Substance: DIFLUNISAL

REACTIONS (4)
  - Dyspnoea [None]
  - Pericardial effusion [Unknown]
  - Weight increased [Unknown]
  - Influenza [None]
